FAERS Safety Report 21434323 (Version 3)
Quarter: 2023Q2

REPORT INFORMATION
  Report Type: Report from Study
  Country: US (occurrence: US)
  Receive Date: 20221010
  Receipt Date: 20230528
  Transmission Date: 20230722
  Serious: Yes (Hospitalization, Other)
  Sender: FDA-Public Use
  Company Number: US-ABBVIE-22K-163-4526020-00

PATIENT
  Sex: Female

DRUGS (2)
  1. IBRUTINIB [Suspect]
     Active Substance: IBRUTINIB
     Indication: Chronic lymphocytic leukaemia
     Route: 048
     Dates: start: 20210609, end: 202208
  2. IBRUTINIB [Suspect]
     Active Substance: IBRUTINIB
     Indication: Chronic lymphocytic leukaemia
     Route: 048
     Dates: start: 202211

REACTIONS (13)
  - Hypertension [Unknown]
  - Platelet count increased [Unknown]
  - Hot flush [Unknown]
  - Memory impairment [Unknown]
  - Fatigue [Unknown]
  - Hypoacusis [Unknown]
  - Diarrhoea [Unknown]
  - Macular degeneration [Unknown]
  - Weight decreased [Unknown]
  - Blood potassium decreased [Unknown]
  - Tooth extraction [Unknown]
  - Amnesia [Unknown]
  - Illness [Unknown]

NARRATIVE: CASE EVENT DATE: 20220101
